FAERS Safety Report 10470226 (Version 1)
Quarter: 2014Q3

REPORT INFORMATION
  Report Type: Spontaneous
  Country: US (occurrence: None)
  Receive Date: 20140904
  Receipt Date: 20140904
  Transmission Date: 20150326
  Serious: No
  Sender: FDA-Public Use
  Company Number: 227571

PATIENT
  Sex: Male

DRUGS (1)
  1. PICATO [Suspect]
     Active Substance: INGENOL MEBUTATE
     Indication: ACTINIC KERATOSIS
     Route: 061
     Dates: start: 20140506, end: 20140508

REACTIONS (6)
  - Inappropriate schedule of drug administration [None]
  - Drug administered at inappropriate site [None]
  - Drug ineffective [None]
  - Application site erythema [None]
  - Skin reaction [None]
  - Hyperaesthesia [None]

NARRATIVE: CASE EVENT DATE: 2012
